FAERS Safety Report 16265907 (Version 1)
Quarter: 2019Q2

REPORT INFORMATION
  Report Type: Report from Study
  Country: US (occurrence: US)
  Receive Date: 20190502
  Receipt Date: 20190502
  Transmission Date: 20190711
  Serious: No
  Sender: FDA-Public Use
  Company Number: PHEH2019US018233

PATIENT
  Sex: Female
  Weight: 60.3 kg

DRUGS (1)
  1. GLATOPA [Suspect]
     Active Substance: GLATIRAMER ACETATE
     Indication: MULTIPLE SCLEROSIS
     Dosage: 40 MG, TIW
     Route: 058
     Dates: start: 20190329

REACTIONS (2)
  - Injection site erythema [Not Recovered/Not Resolved]
  - Injection site swelling [Not Recovered/Not Resolved]
